FAERS Safety Report 6382159-2 (Version None)
Quarter: 2009Q3

REPORT INFORMATION
  Report Type: 
  Country: None (occurrence: None)
  Receive Date: 20090930
  Receipt Date: 20090921
  Transmission Date: 20100115
  Serious: Yes (Other)
  Sender: FDA-Public Use
  Company Number: US-BAYER-200914599BCC

PATIENT
  Age: 63 Year
  Sex: Female
  Weight: 70 kg

DRUGS (13)
  1. ASPIRIN [Suspect]
     Indication: CEREBROVASCULAR ACCIDENT PROPHYLAXIS
     Dosage: TOTAL DAILY DOSE: 81 MG  UNIT DOSE: 81 MG
     Route: 048
     Dates: start: 20080101, end: 20090914
  2. COUMADIN [Concomitant]
  3. TENORMIN [Concomitant]
  4. KDURA [Concomitant]
  5. LASIX [Concomitant]
  6. LANOXIN [Concomitant]
  7. DIOVAN [Concomitant]
  8. KLONOPIN [Concomitant]
  9. NORVASC [Concomitant]
  10. TRICOR [Concomitant]
  11. LAXAZA [Concomitant]
  12. NOVOLOG [Concomitant]
  13. LANTUS [Concomitant]

REACTIONS (3)
  - HYPOAESTHESIA [None]
  - MUSCULAR WEAKNESS [None]
  - TRANSIENT ISCHAEMIC ATTACK [None]
